FAERS Safety Report 5681690-2 (Version None)
Quarter: 2008Q1

REPORT INFORMATION
  Report Type: 
  Country: None (occurrence: None)
  Receive Date: 20080326
  Receipt Date: 20070724
  Transmission Date: 20080703
  Serious: No
  Sender: FDA-Public Use
  Company Number: US-BAYER-US-2007-007653

PATIENT
  Age: 6 Week

DRUGS (1)
  1. MIRENA [Suspect]
     Indication: CONTRACEPTION
     Route: 015
     Dates: start: 20070220

REACTIONS (2)
  - ACNE INFANTILE [None]
  - DRUG EXPOSURE VIA BREAST MILK [None]
